FAERS Safety Report 7372850-3 (Version None)
Quarter: 2011Q1

REPORT INFORMATION
  Report Type: 
  Country: None (occurrence: None)
  Receive Date: 20110324
  Receipt Date: 20110318
  Transmission Date: 20110831
  Serious: Yes (Hospitalization, Other)
  Sender: FDA-Public Use
  Company Number: FR-PFIZER INC-2010065249

PATIENT
  Age: 38 Year
  Sex: Male
  Weight: 135 kg

DRUGS (4)
  1. LYRICA [Suspect]
     Dosage: 33 G, DAILY
  2. SUBUTEX [Concomitant]
     Indication: DRUG DEPENDENCE
     Dosage: 14 MG, 1X/DAY
     Route: 060
     Dates: start: 20070101
  3. DULOXETINE [Concomitant]
     Indication: DEPRESSION
     Dosage: UNK
  4. LYRICA [Suspect]
     Indication: FACIAL NEURALGIA
     Dosage: UNK
     Dates: start: 20040101

REACTIONS (6)
  - SOMNOLENCE [None]
  - DRUG ABUSE [None]
  - EPILEPSY [None]
  - DRUG DEPENDENCE [None]
  - WEIGHT INCREASED [None]
  - WITHDRAWAL SYNDROME [None]
